FAERS Safety Report 25533296 (Version 1)
Quarter: 2025Q3

REPORT INFORMATION
  Report Type: Spontaneous
  Country: EU (occurrence: EU)
  Receive Date: 20250709
  Receipt Date: 20250709
  Transmission Date: 20251020
  Serious: Yes (Hospitalization, Other)
  Sender: ROCHE
  Company Number: EU-ROCHE-10000329736

PATIENT

DRUGS (7)
  1. OCREVUS [Suspect]
     Active Substance: OCRELIZUMAB
     Indication: Product used for unknown indication
     Route: 065
     Dates: start: 202002, end: 202404
  2. COPAXONE [Concomitant]
     Active Substance: GLATIRAMER ACETATE
  3. AVONEX [Concomitant]
     Active Substance: INTERFERON BETA-1A
  4. REBIF [Concomitant]
     Active Substance: INTERFERON BETA-1A
  5. NATALIZUMAB [Concomitant]
     Active Substance: NATALIZUMAB
  6. TERIFLUNOMIDE [Concomitant]
     Active Substance: TERIFLUNOMIDE
  7. FINGOLIMOD [Concomitant]
     Active Substance: FINGOLIMOD

REACTIONS (5)
  - Pneumonia [Unknown]
  - Otitis media [Unknown]
  - Mastoiditis [Unknown]
  - Bezold abscess [Unknown]
  - Osteomyelitis [Unknown]
